FAERS Safety Report 8556335-4 (Version None)
Quarter: 2012Q3

REPORT INFORMATION
  Report Type: 
  Country: None (occurrence: None)
  Receive Date: 20120801
  Receipt Date: 20120727
  Transmission Date: 20120928
  Serious: No
  Sender: FDA-Public Use
  Company Number: US-PFIZER INC-2012182938

PATIENT
  Sex: Female
  Weight: 61.224 kg

DRUGS (5)
  1. TRAMADOL [Concomitant]
     Dosage: 50 MG, UNK
  2. TYLENOL (CAPLET) [Suspect]
     Indication: PAIN
     Dosage: UNK
  3. FLECTOR [Suspect]
     Indication: HIP SURGERY
  4. FLECTOR [Suspect]
     Indication: ARTHRITIS
     Dosage: 1.3 %, EVERY 12 HOURS
     Dates: start: 20110801
  5. LISINOPRIL [Concomitant]
     Indication: BLOOD PRESSURE ABNORMAL
     Dosage: 20 MG, DAILY

REACTIONS (3)
  - CIRCUMSTANCE OR INFORMATION CAPABLE OF LEADING TO MEDICATION ERROR [None]
  - DRUG ADMINISTRATION ERROR [None]
  - SKIN IRRITATION [None]
